FAERS Safety Report 9124470 (Version 2)
Quarter: 2013Q1

REPORT INFORMATION
  Report Type: Spontaneous
  Country: US (occurrence: US)
  Receive Date: 20130227
  Receipt Date: 20130318
  Transmission Date: 20140127
  Serious: Yes (Life-Threatening, Other)
  Sender: FDA-Public Use
  Company Number: US-ASTRAZENECA-2013SE11398

PATIENT
  Age: 51 Year
  Sex: Female
  Weight: 62.6 kg

DRUGS (2)
  1. FASLODEX [Suspect]
     Indication: BREAST CANCER STAGE III
     Route: 030
     Dates: start: 20121108
  2. ZOMETA [Concomitant]

REACTIONS (4)
  - Swelling face [Recovered/Resolved]
  - Dyspnoea [Recovered/Resolved]
  - Pharyngeal oedema [Recovered/Resolved]
  - Erythema [Recovered/Resolved]
